FAERS Safety Report 16900222 (Version 2)
Quarter: 2019Q4

REPORT INFORMATION
  Report Type: Spontaneous
  Country: GB (occurrence: GB)
  Receive Date: 20191009
  Receipt Date: 20191120
  Transmission Date: 20200122
  Serious: Yes (Other)
  Sender: FDA-Public Use
  Company Number: GB-VERTEX PHARMACEUTICALS-2019-008945

PATIENT

DRUGS (1)
  1. ORKAMBI [Suspect]
     Active Substance: IVACAFTOR\LUMACAFTOR
     Indication: CYSTIC FIBROSIS
     Route: 048

REACTIONS (10)
  - Drug reaction with eosinophilia and systemic symptoms [Unknown]
  - Sputum increased [Unknown]
  - Nausea [Unknown]
  - Lung transplant [Unknown]
  - Chest discomfort [Unknown]
  - Pulmonary function test decreased [Unknown]
  - Liver function test abnormal [Unknown]
  - Rash [Unknown]
  - Oxygen saturation decreased [Unknown]
  - Drug ineffective [Unknown]
